FAERS Safety Report 4631145-9 (Version None)
Quarter: 2005Q2

REPORT INFORMATION
  Report Type: 
  Country: None (occurrence: None)
  Receive Date: 20050407
  Receipt Date: 20050407
  Transmission Date: 20051028
  Serious: Yes (Hospitalization)
  Sender: FDA-Public Use
  Company Number: None

PATIENT
  Age: 27 Year
  Sex: Female

DRUGS (6)
  1. DEPAKOTE [Suspect]
     Indication: CONVULSION
     Dosage: 500 MG   BID  ORAL
     Route: 048
  2. DEPAKOTE [Suspect]
     Dosage: 750 MG  QHS  ORAL
     Route: 048
  3. SYNTHROID [Concomitant]
  4. SENOKOT [Concomitant]
  5. SEROQUEL [Concomitant]
  6. DETROL [Concomitant]

REACTIONS (3)
  - ANAEMIA [None]
  - BONE MARROW DEPRESSION [None]
  - THROMBOCYTOPENIA [None]
